FAERS Safety Report 13628343 (Version 1)
Quarter: 2017Q2

REPORT INFORMATION
  Report Type: Spontaneous
  Country: CN (occurrence: CN)
  Receive Date: 20170608
  Receipt Date: 20170608
  Transmission Date: 20170830
  Serious: Yes (Hospitalization)
  Sender: FDA-Public Use
  Company Number: CN-PFIZER INC-2017247544

PATIENT
  Age: 38 Year
  Sex: Male

DRUGS (1)
  1. LIPITOR [Suspect]
     Active Substance: ATORVASTATIN CALCIUM
     Indication: MYOCARDIAL INFARCTION
     Dosage: 20 MG, 1X/DAY
     Route: 048
     Dates: start: 20170401, end: 20170406

REACTIONS (2)
  - Blood creatine phosphokinase increased [Recovering/Resolving]
  - Muscle injury [Recovering/Resolving]

NARRATIVE: CASE EVENT DATE: 20170403
